FAERS Safety Report 5171250-4 (Version None)
Quarter: 2006Q4

REPORT INFORMATION
  Report Type: 
  Country: None (occurrence: None)
  Receive Date: 20061213
  Receipt Date: 20060720
  Transmission Date: 20070319
  Serious: Yes (Other)
  Sender: FDA-Public Use
  Company Number: US-AMGEN-US187244

PATIENT
  Sex: Female

DRUGS (2)
  1. ENBREL [Suspect]
     Indication: RHEUMATOID ARTHRITIS
     Route: 058
     Dates: start: 20051001
  2. METHOTREXATE [Concomitant]
     Dates: start: 19920101

REACTIONS (3)
  - MALIGNANT MELANOMA [None]
  - MELANOCYTIC NAEVUS [None]
  - MOLE EXCISION [None]
